FAERS Safety Report 9855667 (Version 1)
Quarter: 2014Q1

REPORT INFORMATION
  Report Type: Spontaneous
  Country: AU (occurrence: AU)
  Receive Date: 20140130
  Receipt Date: 20140130
  Transmission Date: 20141002
  Serious: Yes (Other)
  Sender: FDA-Public Use
  Company Number: PHHY2014AU007671

PATIENT
  Age: 70 Year
  Sex: Male

DRUGS (3)
  1. OCTREOTIDE [Suspect]
     Dosage: UNK UKN, UNK
  2. FLOUROURACIL [Suspect]
     Dosage: UNK UKN, UNK
  3. INTERFERON [Concomitant]
     Dosage: UNK UKN, UNK

REACTIONS (8)
  - Hand-foot-genital syndrome [Unknown]
  - Pneumonitis [Unknown]
  - Malignant neoplasm progression [Unknown]
  - Metastases to perineum [Unknown]
  - Neuropathy peripheral [Unknown]
  - Renal impairment [Unknown]
  - Mucosal inflammation [Unknown]
  - Diarrhoea [Unknown]
